FAERS Safety Report 6128518-4 (Version None)
Quarter: 2009Q1

REPORT INFORMATION
  Report Type: 
  Country: None (occurrence: None)
  Receive Date: 20090323
  Receipt Date: 20090309
  Transmission Date: 20090719
  Serious: Yes (Other)
  Sender: FDA-Public Use
  Company Number: JAUSA18804

PATIENT
  Age: 31 Year
  Sex: Female
  Weight: 51.71 kg

DRUGS (2)
  1. NIZORAL [Suspect]
     Indication: FUNGAL INFECTION
     Route: 048
     Dates: start: 19841116, end: 19841129
  2. DRAMAMINE [Concomitant]
     Route: 048
     Dates: start: 19841126, end: 19841126

REACTIONS (2)
  - ABORTION SPONTANEOUS [None]
  - DRUG EXPOSURE DURING PREGNANCY [None]
